FAERS Safety Report 9571331 (Version 1)
Quarter: 2013Q1

REPORT INFORMATION
  Report Type: Spontaneous
  Country: US (occurrence: None)
  Receive Date: 20120531
  Receipt Date: 20120531
  Transmission Date: 20140127
  Serious: Yes (Hospitalization, Other)
  Sender: FDA-Public Use
  Company Number: US201201007889

PATIENT
  Sex: Male

DRUGS (1)
  1. BYETTA (EXENATIDE) PEN,DISPOSABLE [Suspect]

REACTIONS (1)
  - Renal failure [None]
